FAERS Safety Report 9764333 (Version 2)
Quarter: 2014Q1

REPORT INFORMATION
  Report Type: Report from Study
  Country: TW (occurrence: TW)
  Receive Date: 20131217
  Receipt Date: 20140110
  Transmission Date: 20141002
  Serious: Yes (Hospitalization)
  Sender: FDA-Public Use
  Company Number: TW-009507513-1312TWN006579

PATIENT
  Age: 58 Year
  Sex: Male
  Weight: 56.2 kg

DRUGS (7)
  1. BLINDED SITAGLIPTIN PHOSPHATE [Suspect]
     Indication: TYPE 2 DIABETES MELLITUS
     Dosage: UNK
     Route: 048
     Dates: start: 20101222, end: 20130403
  2. SIMVASTATIN [Concomitant]
     Indication: HYPERLIPIDAEMIA
     Dosage: 20MG DAILY
     Route: 048
     Dates: start: 20090210
  3. SITAGLIPTIN PHOSPHATE [Concomitant]
     Indication: DIABETES MELLITUS
     Dosage: 100 MG DAILY
     Route: 048
     Dates: start: 20130408
  4. EZETIMIBE [Concomitant]
     Indication: HYPERLIPIDAEMIA
     Dosage: 10 MG DAILY
     Route: 048
     Dates: start: 20090210
  5. BOKEY [Concomitant]
     Indication: PROPHYLAXIS
     Dosage: 100 MG DAILY
     Route: 048
     Dates: start: 20090210
  6. GLIMEPIRIDE [Concomitant]
     Indication: DIABETES MELLITUS
     Dosage: 3 MG DAILY
     Route: 048
     Dates: start: 20130114
  7. METFORMIN [Concomitant]
     Indication: DIABETES MELLITUS
     Dosage: 1000 MG DAILY
     Route: 048
     Dates: start: 20111116

REACTIONS (1)
  - T-cell lymphoma [Recovering/Resolving]
